FAERS Safety Report 6362039-9 (Version None)
Quarter: 2009Q3

REPORT INFORMATION
  Report Type: 
  Country: None (occurrence: None)
  Receive Date: 20090918
  Receipt Date: 20090908
  Transmission Date: 20100115
  Serious: Yes (Hospitalization)
  Sender: FDA-Public Use
  Company Number: DE-ABBOTT-09P-062-0596203-00

PATIENT
  Sex: Male
  Weight: 75 kg

DRUGS (10)
  1. HUMIRA [Suspect]
     Indication: RHEUMATOID ARTHRITIS
     Route: 058
     Dates: start: 20070523, end: 20080502
  2. PREDNISOLONE [Concomitant]
     Indication: RHEUMATOID ARTHRITIS
     Route: 048
     Dates: start: 20030402
  3. ATACAND [Concomitant]
     Indication: DRUG USE FOR UNKNOWN INDICATION
     Dosage: 1/2-0-0
  4. CALCILAC [Concomitant]
     Indication: DRUG USE FOR UNKNOWN INDICATION
  5. VITAMINE E [Concomitant]
     Indication: DRUG USE FOR UNKNOWN INDICATION
  6. CIPRO [Concomitant]
     Indication: DRUG USE FOR UNKNOWN INDICATION
     Dates: start: 20080501
  7. PREDNISOLONE [Concomitant]
     Indication: DRUG USE FOR UNKNOWN INDICATION
     Dosage: 5MG-0-2.5 MG
  8. VALORON [Concomitant]
     Indication: DRUG USE FOR UNKNOWN INDICATION
  9. ATACAND [Concomitant]
  10. LACTULOSE [Concomitant]
     Indication: DRUG USE FOR UNKNOWN INDICATION

REACTIONS (3)
  - EPIDIDYMITIS [None]
  - ORCHITIS [None]
  - URINE ANALYSIS ABNORMAL [None]
